FAERS Safety Report 8699277 (Version 3)
Quarter: 2012Q4

REPORT INFORMATION
  Report Type: 
  Country: DE (occurrence: DE)
  Receive Date: 20120802
  Receipt Date: 20121126
  Transmission Date: 20130627
  Serious: Yes (Death, Hospitalization)
  Sender: FDA-Public Use
  Company Number: DE-BAYER-2012-075245

PATIENT
  Age: 73 Year
  Sex: Male
  Weight: 55 kg

DRUGS (9)
  1. XARELTO [Suspect]
     Indication: ATRIAL FLUTTER
     Dosage: Daily dose 20 mg
     Dates: start: 201202
  2. XARELTO [Interacting]
     Indication: CEREBROVASCULAR ACCIDENT PROPHYLAXIS
  3. ASS [Interacting]
     Dosage: 100 mg, UNK
     Dates: start: 201202
  4. SIMVASTATIN [Suspect]
     Dosage: 40 mg, UNK
     Dates: start: 201202
  5. AMIODARON [Concomitant]
     Dosage: Daily dose 200 mg
  6. METOPROLOL [Concomitant]
     Dosage: 95 mg, BID
  7. RAMIPRIL [Concomitant]
     Dosage: Daily dose 2.5 mg
  8. TORASEMID [Concomitant]
     Dosage: Daily dose 20 mg
  9. PANTOPRAZOLE [Concomitant]
     Dosage: Daily dose 40 mg

REACTIONS (1)
  - Basal ganglia haemorrhage [Fatal]
